FAERS Safety Report 7743225-X (Version None)
Quarter: 2011Q3

REPORT INFORMATION
  Report Type: 
  Country: None (occurrence: None)
  Receive Date: 20110912
  Receipt Date: 20110907
  Transmission Date: 20111222
  Serious: Yes (Life-Threatening)
  Sender: FDA-Public Use
  Company Number: JP-ASTRAZENECA-2011SE09457

PATIENT
  Age: 71 Year
  Sex: Male
  Weight: 61 kg

DRUGS (15)
  1. ALLOPURINOL [Concomitant]
     Route: 048
     Dates: start: 20110112
  2. SELTOUCH [Concomitant]
     Dosage: DOSE UNKNOWN
     Route: 062
     Dates: start: 20110112
  3. IRESSA [Suspect]
     Indication: LUNG ADENOCARCINOMA
     Route: 048
     Dates: start: 20110208, end: 20110213
  4. LAXOBERON [Concomitant]
     Dosage: DOSE UNKNOWN, BEFORE BEDTIME
     Route: 048
     Dates: start: 20110112
  5. DEPAS [Concomitant]
     Route: 048
     Dates: start: 20110112
  6. LANSOPRAZOLE [Concomitant]
     Route: 048
     Dates: start: 20110112
  7. MYONAL [Concomitant]
     Route: 048
     Dates: start: 20110112
  8. OLMESARTAN MEDOXOMIL [Concomitant]
     Route: 048
     Dates: start: 20110112
  9. SELBEX [Concomitant]
     Route: 048
     Dates: start: 20110112
  10. FLAVITAN [Concomitant]
     Route: 048
     Dates: start: 20110112
  11. LIVALO [Concomitant]
     Route: 048
     Dates: start: 20110112
  12. ACTOS [Concomitant]
     Route: 048
     Dates: start: 20110112
  13. HARNAL D [Concomitant]
     Route: 048
     Dates: start: 20110112
  14. FELODIPINE [Concomitant]
     Route: 048
     Dates: start: 20110112
  15. METHYCOBAL [Concomitant]
     Route: 048
     Dates: start: 20110112

REACTIONS (2)
  - DIABETES MELLITUS [None]
  - INTERSTITIAL LUNG DISEASE [None]
